FAERS Safety Report 8932692 (Version 1)
Quarter: 2012Q4

REPORT INFORMATION
  Report Type: 
  Country: SE (occurrence: SE)
  Receive Date: 20121128
  Receipt Date: 20121128
  Transmission Date: 20130627
  Serious: Yes (Other)
  Sender: FDA-Public Use
  Company Number: SE-B.I. PHARMACEUTICALS,INC./RIDGEFIELD-2012-SW-00871SW

PATIENT
  Age: 80 Year
  Sex: Female

DRUGS (4)
  1. PRADAXA [Suspect]
     Indication: ATRIAL FIBRILLATION
     Dosage: 220 mg
     Route: 048
     Dates: start: 20120117, end: 20120515
  2. BISOPROLOL [Concomitant]
  3. IMODIUM [Concomitant]
  4. ALVEDON FORTE [Concomitant]
     Dosage: Formulation: Film-coated tablet 1 g

REACTIONS (1)
  - Dermatitis psoriasiform [Not Recovered/Not Resolved]
